FAERS Safety Report 8395873-4 (Version None)
Quarter: 2012Q2

REPORT INFORMATION
  Report Type: 
  Country: None (occurrence: None)
  Receive Date: 20120530
  Receipt Date: 20120524
  Transmission Date: 20120825
  Serious: Yes (Hospitalization)
  Sender: FDA-Public Use
  Company Number: DE-ROCHE-1065168

PATIENT
  Sex: Male
  Weight: 65 kg

DRUGS (7)
  1. ASPIRIN [Concomitant]
     Route: 048
  2. PANTOPRAZOLE [Concomitant]
     Indication: PROPHYLAXIS
     Route: 048
  3. PREDNISONE TAB [Concomitant]
     Route: 048
     Dates: start: 20120501
  4. NAPROXEN [Concomitant]
     Indication: PAIN IN EXTREMITY
     Route: 048
     Dates: start: 20120501
  5. CISPLATIN [Concomitant]
     Indication: BRONCHIAL CARCINOMA
     Dates: start: 20111109
  6. AMPICILLIN AND SULBACTAM [Concomitant]
     Dosage: 1 DF
     Route: 048
     Dates: start: 20120510, end: 20120517
  7. AVASTIN [Suspect]
     Indication: BRONCHIAL CARCINOMA
     Route: 042
     Dates: start: 20111109, end: 20120330

REACTIONS (6)
  - OEDEMA PERIPHERAL [None]
  - PAIN IN EXTREMITY [None]
  - ARTHRALGIA [None]
  - JOINT SWELLING [None]
  - SKIN NECROSIS [None]
  - ARTERIAL OCCLUSIVE DISEASE [None]
